FAERS Safety Report 25047816 (Version 5)
Quarter: 2025Q2

REPORT INFORMATION
  Report Type: Spontaneous
  Country: US (occurrence: US)
  Receive Date: 20250306
  Receipt Date: 20250514
  Transmission Date: 20250716
  Serious: No
  Sender: DAIICHI
  Company Number: US-DAIICHI SANKYO, INC.-DS-2025-128929-USAA

PATIENT
  Sex: Female

DRUGS (2)
  1. TURALIO [Suspect]
     Active Substance: PEXIDARTINIB HYDROCHLORIDE
     Indication: Giant cell tumour of tendon sheath
     Dosage: 250 MG, BID
     Route: 048
     Dates: start: 202502
  2. TURALIO [Suspect]
     Active Substance: PEXIDARTINIB HYDROCHLORIDE
     Dosage: 250 MG (125MG 2 CAPSULES BY MOUTH TWICE DAILY (AM+PM)
     Route: 048
     Dates: start: 20250218

REACTIONS (9)
  - Pruritus [Unknown]
  - Discomfort [Unknown]
  - Dermatitis contact [Unknown]
  - Fatigue [Unknown]
  - Hypertension [Not Recovered/Not Resolved]
  - Hair colour changes [Not Recovered/Not Resolved]
  - Attention deficit hyperactivity disorder [Not Recovered/Not Resolved]
  - Insomnia [Not Recovered/Not Resolved]
  - Animal scratch [Not Recovered/Not Resolved]
